FAERS Safety Report 4945603-0 (Version None)
Quarter: 2006Q1

REPORT INFORMATION
  Report Type: 
  Country: None (occurrence: None)
  Receive Date: 20060117
  Receipt Date: 20051114
  Transmission Date: 20060701
  Serious: Yes (Hospitalization)
  Sender: FDA-Public Use
  Company Number: A03200503743

PATIENT
  Age: 79 Year
  Sex: Male
  Weight: 95.24 kg

DRUGS (7)
  1. PLAVIX [Suspect]
     Indication: SURGERY
     Dosage: 75 MG QD ORAL
     Route: 048
     Dates: start: 20010101, end: 20051001
  2. PENTOXIFYLLINE [Concomitant]
  3. ISOSORBIDE MONONITRATE [Concomitant]
  4. LISINOPRIL [Concomitant]
  5. CELECOXIB [Concomitant]
  6. ROSIGLITAZONE MALEATE [Concomitant]
  7. BUMETANIDE [Concomitant]

REACTIONS (3)
  - DYSPNOEA [None]
  - FATIGUE [None]
  - PLATELET COUNT DECREASED [None]
